FAERS Safety Report 16685316 (Version 3)
Quarter: 2019Q4

REPORT INFORMATION
  Report Type: Report from Study
  Country: None (occurrence: US)
  Receive Date: 20190808
  Receipt Date: 20191230
  Transmission Date: 20200122
  Serious: Yes (Hospitalization, Other)
  Sender: FDA-Public Use
  Company Number: US-ABBVIE-18K-163-2548315-00

PATIENT
  Sex: Male
  Weight: 126.21 kg

DRUGS (3)
  1. HUMIRA [Suspect]
     Active Substance: ADALIMUMAB
     Indication: PSORIASIS
     Route: 058
     Dates: start: 2014, end: 2017
  2. HUMIRA [Suspect]
     Active Substance: ADALIMUMAB
     Indication: PSORIATIC ARTHROPATHY
     Route: 058
     Dates: start: 2017
  3. ATORVASTATIN [Concomitant]
     Active Substance: ATORVASTATIN
     Indication: PRODUCT USED FOR UNKNOWN INDICATION

REACTIONS (8)
  - Osteoarthritis [Recovered/Resolved]
  - Gait disturbance [Recovered/Resolved]
  - Arthralgia [Recovering/Resolving]
  - Arthralgia [Recovered/Resolved]
  - Psoriatic arthropathy [Unknown]
  - Bursal fluid accumulation [Unknown]
  - Chondropathy [Recovered/Resolved]
  - Ligament sprain [Unknown]

NARRATIVE: CASE EVENT DATE: 2017
